FAERS Safety Report 7799931-4 (Version None)
Quarter: 2011Q4

REPORT INFORMATION
  Report Type: 
  Country: None (occurrence: None)
  Receive Date: 20111004
  Receipt Date: 20110916
  Transmission Date: 20120403
  Serious: Yes (Hospitalization, Other)
  Sender: FDA-Public Use
  Company Number: 2011SP037756

PATIENT
  Age: 56 Year
  Sex: Male
  Weight: 88 kg

DRUGS (10)
  1. COLACE [Concomitant]
  2. PEG-INTRON [Suspect]
     Indication: PRODUCT USED FOR UNKNOWN INDICATION
     Dosage: 150 MG;QW
     Dates: start: 20110810
  3. METOPROLOL TARTRATE [Concomitant]
  4. LOVENOX [Concomitant]
  5. AMITRIPTYLINE HCL [Suspect]
     Indication: PRODUCT USED FOR UNKNOWN INDICATION
     Dates: end: 20110810
  6. OXYCONTIN [Concomitant]
  7. NEXIUM [Concomitant]
  8. RIBAVIRIN [Suspect]
     Indication: PRODUCT USED FOR UNKNOWN INDICATION
     Dosage: 600 MG;BID;PO
     Route: 048
     Dates: start: 20110809
  9. PEG-INTRON [Suspect]
     Indication: PRODUCT USED FOR UNKNOWN INDICATION
     Dates: start: 20110809, end: 20110809
  10. TRAZODONE HYDROCHLORIDE [Suspect]
     Indication: PRODUCT USED FOR UNKNOWN INDICATION
     Dates: end: 20110810

REACTIONS (12)
  - INFLUENZA LIKE ILLNESS [None]
  - SKIN WARM [None]
  - PALPITATIONS [None]
  - HYPERTENSION [None]
  - DRY SKIN [None]
  - OXYGEN SATURATION DECREASED [None]
  - CARDIAC DISORDER [None]
  - CHEST PAIN [None]
  - INTERNATIONAL NORMALISED RATIO DECREASED [None]
  - SINUS BRADYCARDIA [None]
  - LONG QT SYNDROME [None]
  - DRUG INTERACTION [None]
